FAERS Safety Report 13891385 (Version 2)
Quarter: 2017Q3

REPORT INFORMATION
  Report Type: Spontaneous
  Country: US (occurrence: US)
  Receive Date: 20170822
  Receipt Date: 20170825
  Transmission Date: 20171127
  Serious: No
  Sender: FDA-Public Use
  Company Number: US-PFIZER INC-2017359324

PATIENT
  Sex: Male

DRUGS (3)
  1. ENBREL [Suspect]
     Active Substance: ETANERCEPT
     Dosage: UNK
  2. ATORVASTATIN CALCIUM. [Suspect]
     Active Substance: ATORVASTATIN CALCIUM
     Dosage: UNK
  3. METOPROLOL TARTRATE. [Suspect]
     Active Substance: METOPROLOL TARTRATE
     Dosage: UNK

REACTIONS (8)
  - Joint stiffness [Unknown]
  - Joint swelling [Unknown]
  - Depression [Unknown]
  - Fatigue [Unknown]
  - Arthralgia [Unknown]
  - Decreased activity [Unknown]
  - Musculoskeletal stiffness [Unknown]
  - Anxiety [Unknown]
